FAERS Safety Report 10383685 (Version 1)
Quarter: 2014Q1

REPORT INFORMATION
  Report Type: Spontaneous
  Country: US (occurrence: None)
  Receive Date: 20140306
  Receipt Date: 20140306
  Transmission Date: 20141002
  Serious: Yes (Other)
  Sender: FDA-Public Use
  Company Number: 163-21880-12113678

PATIENT
  Age: 61 Year
  Sex: Female
  Weight: 112.4 kg

DRUGS (3)
  1. REVLIMID (LENALIDOMIDE) (CAPSULES) [Suspect]
     Indication: PLASMA CELL MYELOMA
     Dosage: 10 MG, 21 IN 21 D, PO
     Route: 048
     Dates: start: 20100928, end: 20130413
  2. ASPIRIN (ACETYLSALICYLIC ACID) [Concomitant]
  3. AZELASTINE [Concomitant]

REACTIONS (2)
  - Pruritus [None]
  - Osteopenia [None]
